FAERS Safety Report 8053666-1 (Version None)
Quarter: 2012Q1

REPORT INFORMATION
  Report Type: 
  Country: None (occurrence: None)
  Receive Date: 20120118
  Receipt Date: 20120113
  Transmission Date: 20120608
  Serious: Yes (Other)
  Sender: FDA-Public Use
  Company Number: US-PFIZER INC-2010154648

PATIENT
  Sex: Female

DRUGS (14)
  1. LEXAPRO [Concomitant]
     Indication: DEPRESSION
     Dosage: UNK
     Dates: start: 20040501
  2. BUPROPION [Concomitant]
     Indication: SMOKING CESSATION THERAPY
  3. MIRTAZAPINE [Concomitant]
     Indication: DEPRESSION
     Dosage: UNK
     Dates: start: 20070501, end: 20080401
  4. FLONASE [Concomitant]
     Indication: SINUSITIS
     Dosage: UNK
     Dates: start: 20031101
  5. AMOXICILLIN [Concomitant]
     Indication: URINARY TRACT INFECTION
  6. CYMBALTA [Concomitant]
     Indication: DEPRESSION
     Dosage: UNK
     Dates: start: 20070701, end: 20070901
  7. ATIVAN [Concomitant]
     Indication: INSOMNIA
     Dosage: UNK
     Dates: start: 20050401
  8. SULFAMETHOXAZOLE AND TRIMETHOPRIM [Concomitant]
     Indication: SINUSITIS
     Dosage: UNK
     Dates: start: 20070301, end: 20101101
  9. CHANTIX [Suspect]
     Indication: SMOKING CESSATION THERAPY
     Dosage: UNK
     Dates: start: 20061201, end: 20071101
  10. SULFAMETHOXAZOLE AND TRIMETHOPRIM [Concomitant]
     Indication: URINARY TRACT INFECTION
  11. EFFEXOR [Concomitant]
     Indication: DEPRESSION
     Dosage: UNK
     Dates: start: 20040501
  12. AMOXICILLIN [Concomitant]
     Indication: SINUSITIS
     Dosage: UNK
     Dates: start: 20030401, end: 20100901
  13. PROTONIX [Concomitant]
     Indication: GASTROOESOPHAGEAL REFLUX DISEASE
     Dosage: UNK
     Dates: start: 20070801, end: 20070901
  14. BUPROPION [Concomitant]
     Indication: DEPRESSION
     Dosage: UNK
     Dates: start: 19930101

REACTIONS (4)
  - AMNESIA [None]
  - SUICIDAL IDEATION [None]
  - DEPRESSION [None]
  - ANXIETY [None]
